FAERS Safety Report 13231579 (Version 1)
Quarter: 2017Q1

REPORT INFORMATION
  Report Type: Spontaneous
  Country: CN (occurrence: CN)
  Receive Date: 20170214
  Receipt Date: 20170214
  Transmission Date: 20170428
  Serious: Yes (Other)
  Sender: FDA-Public Use
  Company Number: CN-BAYER-2017-026031

PATIENT
  Age: 79 Year
  Sex: Male
  Weight: 62 kg

DRUGS (10)
  1. SODIUM CHLORIDE. [Concomitant]
     Active Substance: SODIUM CHLORIDE
     Dosage: 100 ML, BID
     Route: 041
     Dates: start: 20161115, end: 20161202
  2. MUCOSTA [Concomitant]
     Active Substance: REBAMIPIDE
     Indication: PROPHYLAXIS
     Dosage: 0.1 G, TID
     Route: 048
     Dates: start: 20161114, end: 20161202
  3. GLUCOSE [Concomitant]
     Active Substance: DEXTROSE
     Dosage: 250 ML, QD
     Route: 041
     Dates: start: 20161121, end: 20161202
  4. AVELOX [Suspect]
     Active Substance: MOXIFLOXACIN HYDROCHLORIDE
     Indication: ANTI-INFECTIVE THERAPY
  5. BUMETANIDE. [Suspect]
     Active Substance: BUMETANIDE
     Indication: POLYURIA
     Dosage: 1 MG, QD
     Route: 042
     Dates: start: 20161123, end: 20161125
  6. CLAFORAN [Concomitant]
     Active Substance: CEFOTAXIME SODIUM
     Indication: BRONCHITIS
     Dosage: 2 G, BID
     Route: 041
     Dates: start: 20161115, end: 20161202
  7. ATORVASTATIN [Concomitant]
     Active Substance: ATORVASTATIN
     Indication: ANGIOPATHY
     Dosage: 20 MG, QD
     Route: 048
     Dates: start: 20161114, end: 20161202
  8. CLOPIDOGREL [Concomitant]
     Active Substance: CLOPIDOGREL BISULFATE
     Indication: PLATELET DISORDER
     Dosage: 75 MG, QD
     Route: 048
     Dates: start: 20161114, end: 20161202
  9. AVELOX [Suspect]
     Active Substance: MOXIFLOXACIN HYDROCHLORIDE
     Indication: BRONCHITIS
     Dosage: 250 ML, QD
     Route: 041
     Dates: start: 20161121, end: 20161126
  10. BUMETANIDE. [Suspect]
     Active Substance: BUMETANIDE
     Indication: POLYURIA
     Dosage: 1 MG, BID
     Route: 042
     Dates: start: 20161121, end: 20161122

REACTIONS (2)
  - Blood lactic acid increased [Recovering/Resolving]
  - Carbon dioxide increased [Recovering/Resolving]

NARRATIVE: CASE EVENT DATE: 20161126
